FAERS Safety Report 9714036 (Version 1)
Quarter: 2013Q4

REPORT INFORMATION
  Report Type: Spontaneous
  Country: IT (occurrence: IT)
  Receive Date: 20131126
  Receipt Date: 20131126
  Transmission Date: 20140711
  Serious: Yes (Other)
  Sender: FDA-Public Use
  Company Number: IT-ASTELLAS-2013EU010004

PATIENT
  Age: 60 Year
  Sex: Male

DRUGS (5)
  1. MYCAMINE [Suspect]
     Indication: CANDIDA INFECTION
     Dosage: 100 MG, UNKNOWN/D
     Route: 042
     Dates: start: 20131030, end: 20131110
  2. MYCAMINE [Suspect]
     Indication: ESCHERICHIA INFECTION
  3. MEROPENEM [Concomitant]
     Dosage: UNK
     Route: 065
     Dates: start: 20131030, end: 20131110
  4. TEICOPLANINA [Concomitant]
     Dosage: UNK
     Route: 065
     Dates: start: 20131030, end: 20131110
  5. TACROLIMUS [Concomitant]
     Indication: LIVER TRANSPLANT
     Dosage: UNK
     Route: 065

REACTIONS (1)
  - Hyponatraemia [Not Recovered/Not Resolved]
